FAERS Safety Report 9258631 (Version 1)
Quarter: 2013Q2

REPORT INFORMATION
  Report Type: Spontaneous
  Country: PH (occurrence: PH)
  Receive Date: 20130426
  Receipt Date: 20130426
  Transmission Date: 20140414
  Serious: Yes (Life-Threatening, Hospitalization, Disabling, Other)
  Sender: FDA-Public Use
  Company Number: PH-009507513-1304PHL003102

PATIENT
  Sex: Female
  Weight: 81.63 kg

DRUGS (3)
  1. VICTRELIS [Suspect]
     Indication: HEPATITIS
     Dosage: 800 MG, TID
     Route: 048
     Dates: start: 20130109
  2. REBETOL [Suspect]
     Indication: HEPATITIS
     Dosage: 400 MG, QD
     Route: 048
     Dates: start: 20121116
  3. PEG-INTRON REDIPEN [Suspect]
     Indication: HEPATITIS
     Dosage: 100 MICROGRAM, QW
     Route: 058
     Dates: start: 20121116

REACTIONS (6)
  - Skin discolouration [Recovered/Resolved]
  - Decreased appetite [Unknown]
  - Dysgeusia [Recovered/Resolved]
  - Hepatic encephalopathy [Recovered/Resolved]
  - Pleural effusion [Unknown]
  - Pyrexia [Recovered/Resolved]
